FAERS Safety Report 8507950 (Version 2)
Quarter: 2014Q2

REPORT INFORMATION
  Report Type: Spontaneous
  Country: US (occurrence: US)
  Receive Date: 20120412
  Receipt Date: 20140507
  Transmission Date: 20141212
  Serious: Yes (Hospitalization)
  Sender: FDA-Public Use
  Company Number: US-ASTRAZENECA-2011SE37714

PATIENT
  Age: 67 Year
  Sex: Female

DRUGS (3)
  1. NEXIUM [Suspect]
     Route: 048
  2. CRESTOR [Suspect]
     Indication: BLOOD CHOLESTEROL ABNORMAL
     Route: 048
  3. INSULIN PUMP [Concomitant]

REACTIONS (5)
  - Anxiety [Unknown]
  - Depression [Unknown]
  - Blood glucose decreased [Unknown]
  - Dyspnoea [Not Recovered/Not Resolved]
  - Malaise [Unknown]
